FAERS Safety Report 13154035 (Version 1)
Quarter: 2017Q1

REPORT INFORMATION
  Report Type: Report from Study
  Country: US (occurrence: US)
  Receive Date: 20170126
  Receipt Date: 20170126
  Transmission Date: 20170428
  Serious: No
  Sender: FDA-Public Use
  Company Number: US-AMGEN-USASL2016097274

PATIENT
  Age: 64 Year
  Sex: Female

DRUGS (2)
  1. LENALIDOMIDE [Suspect]
     Active Substance: LENALIDOMIDE
     Indication: PLASMA CELL MYELOMA
     Dosage: UNK, 21 DAYS ORALLY THEN 7 DAYS OFF
     Route: 048
  2. KYPROLIS [Suspect]
     Active Substance: CARFILZOMIB
     Indication: PLASMA CELL MYELOMA
     Dosage: UNK
     Route: 065

REACTIONS (10)
  - Mobility decreased [Unknown]
  - Diarrhoea [Unknown]
  - Pharyngeal oedema [Unknown]
  - Headache [Unknown]
  - Tongue discolouration [Unknown]
  - Malaise [Unknown]
  - Visual impairment [Unknown]
  - Glossodynia [Unknown]
  - Adverse drug reaction [Unknown]
  - Pain [Unknown]
